FAERS Safety Report 16312555 (Version 2)
Quarter: 2019Q2

REPORT INFORMATION
  Report Type: Spontaneous
  Country: DE (occurrence: DE)
  Receive Date: 20190515
  Receipt Date: 20190601
  Transmission Date: 20190711
  Serious: Yes (Hospitalization)
  Sender: FDA-Public Use
  Company Number: DE-AUROBINDO-AUR-APL-2019-026619

PATIENT

DRUGS (1)
  1. LEVETIRACETAM AUROBINDO ORAL SOLUTION 100 MG / ML [Suspect]
     Active Substance: LEVETIRACETAM
     Indication: PRODUCT USED FOR UNKNOWN INDICATION
     Dosage: UNK
     Route: 048
     Dates: start: 201904

REACTIONS (2)
  - Liquid product physical issue [Unknown]
  - Therapeutic product effect incomplete [Unknown]
